FAERS Safety Report 5064302-0 (Version None)
Quarter: 2006Q3

REPORT INFORMATION
  Report Type: 
  Country: None (occurrence: None)
  Receive Date: 20060706
  Receipt Date: 20060307
  Transmission Date: 20061208
  Serious: No
  Sender: FDA-Public Use
  Company Number: 200513139BWH

PATIENT
  Age: 68 Year
  Sex: Male

DRUGS (5)
  1. LEVITRA [Suspect]
     Indication: ANORGASMIA
     Dosage: 20 MG, ONCE, ORAL
     Route: 048
     Dates: start: 20051118
  2. PROSCAR [Concomitant]
  3. CLONAZEPAM [Concomitant]
  4. ASPIRIN [Concomitant]
  5. PROTONIX [Concomitant]

REACTIONS (4)
  - DIZZINESS [None]
  - LETHARGY [None]
  - MALE ORGASMIC DISORDER [None]
  - NAUSEA [None]
